FAERS Safety Report 24020761 (Version 1)
Quarter: 2024Q2

REPORT INFORMATION
  Report Type: Spontaneous
  Country: PT (occurrence: PT)
  Receive Date: 20240627
  Receipt Date: 20240627
  Transmission Date: 20240716
  Serious: Yes (Hospitalization)
  Sender: FDA-Public Use
  Company Number: PT-GILEAD-2024-0675540

PATIENT
  Sex: Female
  Weight: 95.5 kg

DRUGS (59)
  1. PEMBROLIZUMAB [Suspect]
     Active Substance: PEMBROLIZUMAB
     Indication: Non-small cell lung cancer
     Dosage: 200 MG
     Route: 042
     Dates: start: 20240122, end: 20240122
  2. PEMBROLIZUMAB [Suspect]
     Active Substance: PEMBROLIZUMAB
     Dosage: 200 MG
     Route: 042
     Dates: start: 20240306, end: 20240306
  3. PEMBROLIZUMAB [Suspect]
     Active Substance: PEMBROLIZUMAB
     Dosage: 200 MG
     Route: 042
     Dates: start: 20231213, end: 20231213
  4. PEMBROLIZUMAB [Suspect]
     Active Substance: PEMBROLIZUMAB
     Dosage: 200 MG
     Route: 042
     Dates: start: 20240327, end: 20240327
  5. PEMBROLIZUMAB [Suspect]
     Active Substance: PEMBROLIZUMAB
     Dosage: 200 MG
     Route: 042
     Dates: start: 20231120, end: 20231120
  6. PEMBROLIZUMAB [Suspect]
     Active Substance: PEMBROLIZUMAB
     Dosage: 200 MG
     Route: 042
     Dates: start: 20231009, end: 20231009
  7. PEMBROLIZUMAB [Suspect]
     Active Substance: PEMBROLIZUMAB
     Dosage: 200 MG
     Route: 042
     Dates: start: 20240104, end: 20240104
  8. PEMBROLIZUMAB [Suspect]
     Active Substance: PEMBROLIZUMAB
     Dosage: 200 MG
     Route: 042
     Dates: start: 20240417, end: 20240417
  9. PEMBROLIZUMAB [Suspect]
     Active Substance: PEMBROLIZUMAB
     Dosage: 200 MG
     Route: 042
     Dates: start: 20240212, end: 20240212
  10. PEMBROLIZUMAB [Suspect]
     Active Substance: PEMBROLIZUMAB
     Dosage: 200 MG
     Route: 042
     Dates: start: 20240529, end: 20240529
  11. PEMBROLIZUMAB [Suspect]
     Active Substance: PEMBROLIZUMAB
     Dosage: 200 MG
     Route: 042
     Dates: start: 20240508, end: 20240508
  12. PEMBROLIZUMAB [Suspect]
     Active Substance: PEMBROLIZUMAB
     Dosage: 200 MG
     Route: 042
     Dates: start: 20231102, end: 20231102
  13. PEMBROLIZUMAB [Suspect]
     Active Substance: PEMBROLIZUMAB
     Dosage: 200 MG
     Route: 042
     Dates: start: 20231009, end: 20240529
  14. CARBOPLATIN [Suspect]
     Active Substance: CARBOPLATIN
     Indication: Non-small cell lung cancer
     Dosage: 750 MG
     Route: 042
     Dates: start: 20231102, end: 20231102
  15. CARBOPLATIN [Suspect]
     Active Substance: CARBOPLATIN
     Dosage: 750 MG
     Route: 042
     Dates: start: 20231009, end: 20231009
  16. CARBOPLATIN [Suspect]
     Active Substance: CARBOPLATIN
     Dosage: 750 MG
     Route: 042
     Dates: start: 20231120, end: 20231120
  17. CARBOPLATIN [Suspect]
     Active Substance: CARBOPLATIN
     Dosage: 750 MG
     Route: 042
     Dates: start: 20231213, end: 20231213
  18. CARBOPLATIN [Suspect]
     Active Substance: CARBOPLATIN
     Dosage: 750 MG
     Route: 042
     Dates: start: 20231009, end: 20231213
  19. PEMETREXED [Suspect]
     Active Substance: PEMETREXED
     Indication: Non-small cell lung cancer
     Dosage: 1060 MG
     Route: 042
     Dates: start: 20231120, end: 20231120
  20. PEMETREXED [Suspect]
     Active Substance: PEMETREXED
     Dosage: 1055 MG
     Route: 042
     Dates: start: 20240417, end: 20240417
  21. PEMETREXED [Suspect]
     Active Substance: PEMETREXED
     Dosage: 1055 MG
     Route: 042
     Dates: start: 20240212, end: 20240212
  22. PEMETREXED [Suspect]
     Active Substance: PEMETREXED
     Dosage: 1055 MG
     Route: 042
     Dates: start: 20240104, end: 20240104
  23. PEMETREXED [Suspect]
     Active Substance: PEMETREXED
     Dosage: 1055 MG
     Route: 042
     Dates: start: 20231213, end: 20231213
  24. PEMETREXED [Suspect]
     Active Substance: PEMETREXED
     Dosage: 1055 MG
     Route: 042
     Dates: start: 20240122, end: 20240122
  25. PEMETREXED [Suspect]
     Active Substance: PEMETREXED
     Dosage: 787.5 MG
     Route: 042
     Dates: start: 20240529, end: 20240529
  26. PEMETREXED [Suspect]
     Active Substance: PEMETREXED
     Dosage: 1060 MG
     Route: 042
     Dates: start: 20231009, end: 20231009
  27. PEMETREXED [Suspect]
     Active Substance: PEMETREXED
     Dosage: 1055 MG
     Route: 042
     Dates: start: 20240508, end: 20240529
  28. PEMETREXED [Suspect]
     Active Substance: PEMETREXED
     Dosage: 1060 MG
     Route: 042
     Dates: start: 20231009, end: 20231120
  29. PEMETREXED [Suspect]
     Active Substance: PEMETREXED
     Dosage: 1055 MG
     Route: 042
     Dates: start: 20240327, end: 20240327
  30. PEMETREXED [Suspect]
     Active Substance: PEMETREXED
     Dosage: 787.5 MG
     Route: 042
     Dates: start: 20240508, end: 20240508
  31. PEMETREXED [Suspect]
     Active Substance: PEMETREXED
     Dosage: 1055 MG
     Route: 042
     Dates: start: 20240306, end: 20240306
  32. PEMETREXED [Suspect]
     Active Substance: PEMETREXED
     Dosage: 1060 MG
     Route: 042
     Dates: start: 20231102, end: 20231102
  33. PEMETREXED [Suspect]
     Active Substance: PEMETREXED
     Dosage: 1055 MG
     Route: 042
     Dates: start: 20231213, end: 20240417
  34. METOCLOPRAMIDE [Concomitant]
     Active Substance: METOCLOPRAMIDE
     Indication: Prophylaxis
     Dosage: UNK
     Route: 048
     Dates: start: 20231009
  35. IBUPROFEN [Concomitant]
     Active Substance: IBUPROFEN
     Indication: Prophylaxis
     Dosage: UNK
     Route: 048
     Dates: start: 20231120
  36. BILASTINE [Concomitant]
     Active Substance: BILASTINE
     Indication: Photosensitivity reaction
     Dosage: UNK
     Route: 048
     Dates: start: 20231017
  37. NETUPITANT AND PALONOSETRON HYDROCHLORIDE [Concomitant]
     Indication: Premedication
     Dosage: UNK
     Route: 048
     Dates: start: 20240508, end: 20240508
  38. NETUPITANT AND PALONOSETRON HYDROCHLORIDE [Concomitant]
     Dosage: UNK
     Route: 048
     Dates: start: 20240529, end: 20240529
  39. ALPRAZOLAM [Concomitant]
     Active Substance: ALPRAZOLAM
     Indication: Anxiety
     Dosage: UNK
     Route: 048
  40. ALPRAZOLAM [Concomitant]
     Active Substance: ALPRAZOLAM
     Dosage: UNK
     Route: 048
  41. ALPRAZOLAM [Concomitant]
     Active Substance: ALPRAZOLAM
     Dosage: UNK
     Route: 048
  42. LIDOCAINE [Concomitant]
     Active Substance: LIDOCAINE
     Indication: Stomatitis
     Dosage: UNK
     Route: 002
     Dates: start: 20231013
  43. NYSTATIN [Concomitant]
     Active Substance: NYSTATIN
     Indication: Stomatitis
     Dosage: UNK
     Route: 002
     Dates: start: 20231013
  44. BETAMETHASONE DIPROPIONATE\CLOTRIMAZOLE [Concomitant]
     Active Substance: BETAMETHASONE DIPROPIONATE\CLOTRIMAZOLE
     Indication: Psoriasis
     Dosage: UNK
     Route: 061
     Dates: start: 20231017
  45. CYANOCOBALAMIN [Concomitant]
     Active Substance: CYANOCOBALAMIN
     Indication: Premedication
     Dosage: UNK
     Route: 030
     Dates: start: 20240529, end: 20240529
  46. FLUCONAZOLE [Concomitant]
     Active Substance: FLUCONAZOLE
     Indication: Stomatitis
     Dosage: UNK
     Route: 048
     Dates: start: 20231213
  47. BETAMETHASONE\CALCIPOTRIENE [Concomitant]
     Active Substance: BETAMETHASONE\CALCIPOTRIENE
     Indication: Psoriasis
     Dosage: UNK
     Route: 061
  48. DEXAMETHASONE [Concomitant]
     Active Substance: DEXAMETHASONE
     Indication: Premedication
     Dosage: UNK
     Route: 042
     Dates: start: 20240529, end: 20240529
  49. DEXAMETHASONE [Concomitant]
     Active Substance: DEXAMETHASONE
     Dosage: UNK
     Route: 042
     Dates: start: 20240508, end: 20240508
  50. DEXAMETHASONE [Concomitant]
     Active Substance: DEXAMETHASONE
     Dosage: UNK
     Route: 048
     Dates: start: 20240528, end: 20240530
  51. ACETYLCYSTEINE [Concomitant]
     Active Substance: ACETYLCYSTEINE
     Indication: Cough
     Dosage: UNK
     Route: 048
     Dates: start: 20231120
  52. METHYLPREDNISOLONE [Concomitant]
     Active Substance: METHYLPREDNISOLONE
     Indication: Photosensitivity reaction
     Dosage: UNK
     Route: 061
     Dates: start: 20231017
  53. FOLIC ACID [Concomitant]
     Active Substance: FOLIC ACID
     Indication: Premedication
     Route: 048
     Dates: start: 20230927
  54. ACETAMINOPHEN [Concomitant]
     Active Substance: ACETAMINOPHEN
     Indication: Prophylaxis
     Route: 048
     Dates: start: 20231120
  55. SODIUM BICARBONATE [Concomitant]
     Active Substance: SODIUM BICARBONATE
     Indication: Stomatitis
     Dosage: UNK
     Route: 002
     Dates: start: 20231013
  56. FUROSEMIDE [Concomitant]
     Active Substance: FUROSEMIDE
     Indication: Hypertension
     Dosage: UNK
     Route: 048
     Dates: start: 20240417
  57. LERCANIDIPINE [Concomitant]
     Active Substance: LERCANIDIPINE
     Indication: Hypertension
     Dosage: UNK
     Route: 048
     Dates: start: 20240529
  58. FERROUS SULFATE [Concomitant]
     Active Substance: FERROUS SULFATE
     Indication: Anaemia
     Dosage: UNK
     Route: 048
     Dates: start: 20240529
  59. DOXYLAMINE [Concomitant]
     Active Substance: DOXYLAMINE
     Indication: Nausea
     Dosage: UNK
     Route: 048
     Dates: start: 20231213

REACTIONS (3)
  - Platelet count decreased [Not Recovered/Not Resolved]
  - Infection [Recovering/Resolving]
  - Anaemia [Not Recovered/Not Resolved]

NARRATIVE: CASE EVENT DATE: 20240603
